FAERS Safety Report 7011468-9 (Version None)
Quarter: 2010Q3

REPORT INFORMATION
  Report Type: 
  Country: None (occurrence: None)
  Receive Date: 20100923
  Receipt Date: 20090212
  Transmission Date: 20110219
  Serious: No
  Sender: FDA-Public Use
  Company Number: US-WYE-H08178209

PATIENT
  Age: 65 Year
  Sex: Female

DRUGS (4)
  1. PREMARIN [Suspect]
     Indication: HORMONE THERAPY
     Dosage: UNSPECIFIED DOSE EXTERNALLY 1-2 TIMES A MONTH
     Route: 067
     Dates: start: 20081201, end: 20090205
  2. PREMARIN [Suspect]
     Dosage: 2 GRAMS DAILY
     Route: 067
     Dates: start: 20090205, end: 20090212
  3. PREMARIN [Suspect]
     Dosage: 1 GRAM 3 TIMES A WEEK
     Route: 067
     Dates: start: 20090212
  4. ACETYLSALICYLIC ACID [Concomitant]

REACTIONS (4)
  - ABDOMINAL DISCOMFORT [None]
  - ATROPHIC VULVOVAGINITIS [None]
  - MEDICATION RESIDUE [None]
  - OCULAR HYPERAEMIA [None]
